FAERS Safety Report 10084262 (Version 1)
Quarter: 2014Q2

REPORT INFORMATION
  Report Type: Report from Study
  Country: CA (occurrence: CA)
  Receive Date: 20140417
  Receipt Date: 20140417
  Transmission Date: 20141212
  Serious: Yes (Other)
  Sender: FDA-Public Use
  Company Number: CA-JNJFOC-20140408279

PATIENT
  Age: 37 Year
  Sex: Male
  Weight: 77 kg

DRUGS (2)
  1. REMICADE [Suspect]
     Indication: COLITIS ULCERATIVE
     Route: 042
     Dates: start: 20130916
  2. SALOFALK [Concomitant]
     Route: 065

REACTIONS (3)
  - Fistula [Unknown]
  - Mouth ulceration [Unknown]
  - Colitis ulcerative [Unknown]
